FAERS Safety Report 15140304 (Version 1)
Quarter: 2018Q3

REPORT INFORMATION
  Report Type: Spontaneous
  Country: DK (occurrence: DK)
  Receive Date: 20180713
  Receipt Date: 20180713
  Transmission Date: 20181010
  Serious: Yes (Life-Threatening)
  Sender: FDA-Public Use
  Company Number: DK-B.I. PHARMACEUTICALS,INC./RIDGEFIELD-2018-12-002374

PATIENT
  Age: 63 Year
  Sex: Female
  Weight: 74 kg

DRUGS (10)
  1. PANTOPRAZOL SANDOZ [Concomitant]
     Active Substance: PANTOPRAZOLE SODIUM
     Indication: DYSPEPSIA
     Dosage: RESISTANT TABLET
     Route: 048
     Dates: start: 20140226
  2. SIMVASTATIN ACTAVIS [Concomitant]
     Active Substance: SIMVASTATIN
     Indication: HYPERCHOLESTEROLAEMIA
     Route: 048
     Dates: start: 20080708
  3. METFORMIN AUROBINDO [Concomitant]
     Active Substance: METFORMIN HYDROCHLORIDE
     Indication: TYPE 2 DIABETES MELLITUS
     Route: 048
     Dates: start: 20180221
  4. JARDIANCE [Suspect]
     Active Substance: EMPAGLIFLOZIN
     Indication: TYPE 2 DIABETES MELLITUS
     Route: 048
     Dates: start: 20180430, end: 20180505
  5. DERMOVAT [Concomitant]
     Active Substance: CLOBETASOL
     Indication: ECZEMA
     Dosage: STRENGTH: 0.5 MG/G. DOSE: 1 TIME DAILY FOR 1?3 WEEKS, EVERY SECOND DAY FOR 1 WEEK; AS REQUIRED.
     Route: 065
     Dates: start: 20141103
  6. FEXOFENADINE [Concomitant]
     Active Substance: FEXOFENADINE\FEXOFENADINE HYDROCHLORIDE
     Indication: URTICARIA
     Dosage: STYRKE: 180 MG.
     Route: 048
     Dates: start: 20170131
  7. UNIKALK BASIC [Concomitant]
     Indication: OSTEOPOROSIS
     Dosage: STYRKE: 400 MG.
     Route: 048
     Dates: start: 20121011
  8. PANODIL [Concomitant]
     Active Substance: ACETAMINOPHEN
     Indication: PAIN
     Dosage: STYRKE: 500 MG. DOSIS: 2 TABLETTER P.N., H?JST 4 GANGE DAGLIGT.; AS REQUIRED
     Route: 048
     Dates: start: 20141223
  9. PROLIA [Concomitant]
     Active Substance: DENOSUMAB
     Indication: OSTEOPOROSIS
     Dosage: STRENGTH 60 MG/ML. FORM? SOLUTION FOR INJECTION
     Route: 058
     Dates: start: 20121011
  10. TRULICITY [Concomitant]
     Active Substance: DULAGLUTIDE
     Indication: DIABETES MELLITUS
     Dosage: SOLUTION FOR INJECTION IN CARTRIDGE
     Route: 058
     Dates: start: 20180221

REACTIONS (4)
  - Nausea [Recovered/Resolved]
  - Vomiting [Recovered/Resolved]
  - Diabetic ketoacidosis [Recovered/Resolved]
  - Abdominal pain [Recovered/Resolved]

NARRATIVE: CASE EVENT DATE: 20180502
